FAERS Safety Report 17195210 (Version 2)
Quarter: 2020Q1

REPORT INFORMATION
  Report Type: Spontaneous
  Country: US (occurrence: US)
  Receive Date: 20191224
  Receipt Date: 20200210
  Transmission Date: 20200409
  Serious: Yes (Death, Hospitalization, Other)
  Sender: FDA-Public Use
  Company Number: US-DRREDDYS-USA/USA/19/0117746

PATIENT
  Age: 20 Year
  Sex: Male

DRUGS (7)
  1. BORTEZOMIB. [Suspect]
     Active Substance: BORTEZOMIB
     Indication: TRANSPLANT REJECTION
     Dosage: DAY 1 (FIRST COURSE)
  2. BORTEZOMIB. [Suspect]
     Active Substance: BORTEZOMIB
     Dosage: DAY 11  (FIRST COURSE)
  3. BORTEZOMIB. [Suspect]
     Active Substance: BORTEZOMIB
     Dosage: DAY 4  (FIRST COURSE)
  4. BORTEZOMIB. [Suspect]
     Active Substance: BORTEZOMIB
     Dosage: DAY 18  (SECOND COURSE)
  5. BORTEZOMIB. [Suspect]
     Active Substance: BORTEZOMIB
     Dosage: DAY 7  (FIRST COURSE)
  6. BORTEZOMIB. [Suspect]
     Active Substance: BORTEZOMIB
     Dosage: DAY 15  (SECOND COURSE)
  7. BORTEZOMIB. [Suspect]
     Active Substance: BORTEZOMIB
     Dosage: ON TREATMENT DAY 24

REACTIONS (14)
  - Pulmonary fibrosis [Fatal]
  - Pulmonary haemorrhage [Fatal]
  - Pulmonary toxicity [Unknown]
  - Pain in extremity [Unknown]
  - Respiratory failure [Unknown]
  - Neuropathy peripheral [Unknown]
  - Bronchiectasis [Unknown]
  - Multiple organ dysfunction syndrome [Unknown]
  - Renal impairment [Unknown]
  - Cardiac arrest [Unknown]
  - Pulmonary hypertension [Unknown]
  - Diffuse alveolar damage [Fatal]
  - Thrombocytopenia [Unknown]
  - Arthralgia [Unknown]
